FAERS Safety Report 21416301 (Version 2)
Quarter: 2023Q1

REPORT INFORMATION
  Report Type: Spontaneous
  Country: US (occurrence: US)
  Receive Date: 20221006
  Receipt Date: 20230201
  Transmission Date: 20230418
  Serious: No
  Sender: FDA-Public Use
  Company Number: US-ELI_LILLY_AND_COMPANY-US202209008413

PATIENT
  Age: 58 Year
  Sex: Female

DRUGS (4)
  1. MOUNJARO [Suspect]
     Active Substance: TIRZEPATIDE
     Indication: Type 2 diabetes mellitus
     Dosage: 2.5 MG, UNKNOWN
     Route: 058
     Dates: start: 20220722
  2. MOUNJARO [Suspect]
     Active Substance: TIRZEPATIDE
     Dosage: 2.5 MG
     Route: 058
     Dates: start: 20220722
  3. MOUNJARO [Suspect]
     Active Substance: TIRZEPATIDE
     Indication: Type 2 diabetes mellitus
     Dosage: 5 MG, UNKNOWN
     Route: 065
  4. METFORMIN [Concomitant]
     Active Substance: METFORMIN HYDROCHLORIDE
     Indication: Type 2 diabetes mellitus
     Dosage: UNK, UNKNOWN
     Route: 065

REACTIONS (13)
  - Extra dose administered [Unknown]
  - Incorrect dose administered [Unknown]
  - Pain [Recovered/Resolved]
  - Myalgia [Recovered/Resolved]
  - Feeling abnormal [Recovered/Resolved]
  - Abdominal distension [Unknown]
  - Decreased appetite [Unknown]
  - Abdominal pain upper [Unknown]
  - Dyspepsia [Recovered/Resolved]
  - COVID-19 [Recovered/Resolved]
  - Hypophagia [Unknown]
  - Increased appetite [Not Recovered/Not Resolved]
  - Asthenia [Unknown]

NARRATIVE: CASE EVENT DATE: 20220901
